FAERS Safety Report 4812750-3 (Version None)
Quarter: 2005Q4

REPORT INFORMATION
  Report Type: 
  Country: None (occurrence: None)
  Receive Date: 20051028
  Receipt Date: 20041115
  Transmission Date: 20060501
  Serious: No
  Sender: FDA-Public Use
  Company Number: US-GLAXOSMITHKLINE-A0533944A

PATIENT
  Age: 8 Year
  Sex: Female

DRUGS (4)
  1. ADVAIR DISKUS 100/50 [Suspect]
     Indication: ASTHMA
     Dosage: 2PUFF TWICE PER DAY
     Route: 055
     Dates: start: 20041107
  2. NASACORT [Concomitant]
  3. SINGULAIR [Concomitant]
  4. ZYRTEC [Concomitant]

REACTIONS (2)
  - DYSPNOEA [None]
  - PHARYNGOLARYNGEAL PAIN [None]
